FAERS Safety Report 5845993-0 (Version None)
Quarter: 2008Q3

REPORT INFORMATION
  Report Type: 
  Country: None (occurrence: None)
  Receive Date: 20080813
  Receipt Date: 20080804
  Transmission Date: 20090109
  Serious: Yes (Other)
  Sender: FDA-Public Use
  Company Number: CC# 08-100

PATIENT
  Age: 38 Year
  Sex: Female
  Weight: 78.9259 kg

DRUGS (1)
  1. METRONIDAZOLE VAGINAL GEL, 0.75% [Suspect]
     Indication: CERVICITIS
     Dosage: 37.5 MG
     Dates: start: 20080708

REACTIONS (2)
  - ABORTION COMPLETE [None]
  - ABORTION SPONTANEOUS [None]
